FAERS Safety Report 5811017-4 (Version None)
Quarter: 2008Q3

REPORT INFORMATION
  Report Type: 
  Country: None (occurrence: None)
  Receive Date: 20080710
  Receipt Date: 20080702
  Transmission Date: 20090109
  Serious: Yes (Hospitalization)
  Sender: FDA-Public Use
  Company Number: 2008SP011563

PATIENT
  Age: 57 Year
  Sex: Female

DRUGS (3)
  1. PEG-INTRON [Suspect]
     Indication: HEPATITIS C
     Dosage: 80 MCG;QW; SC
     Route: 058
     Dates: start: 20070427, end: 20071217
  2. PEG-INTRON [Suspect]
     Indication: HEPATITIS POST TRANSFUSION
     Dosage: 80 MCG;QW; SC
     Route: 058
     Dates: start: 20070427, end: 20071217
  3. COPEGUS [Concomitant]

REACTIONS (1)
  - SPONDYLITIS [None]
